FAERS Safety Report 18255644 (Version 1)
Quarter: 2020Q3

REPORT INFORMATION
  Report Type: Spontaneous
  Country: US (occurrence: US)
  Receive Date: 20200910
  Receipt Date: 20200910
  Transmission Date: 20201103
  Serious: Yes (Life-Threatening, Other)
  Sender: FDA-Public Use
  Company Number: US-NOVOPROD-740565

PATIENT
  Sex: Male

DRUGS (1)
  1. NOVOLOG [Suspect]
     Active Substance: INSULIN ASPART
     Indication: TYPE 1 DIABETES MELLITUS
     Dosage: UNK
     Route: 058
     Dates: start: 202001

REACTIONS (4)
  - Product quality issue [Unknown]
  - Blood glucose increased [Recovered/Resolved]
  - Therapeutic product effect variable [Unknown]
  - Device leakage [Unknown]

NARRATIVE: CASE EVENT DATE: 20200704
